FAERS Safety Report 7524713-8 (Version None)
Quarter: 2011Q2

REPORT INFORMATION
  Report Type: 
  Country: None (occurrence: None)
  Receive Date: 20110525
  Receipt Date: 20110510
  Transmission Date: 20111010
  Serious: Yes (Hospitalization)
  Sender: FDA-Public Use
  Company Number: 2011MA005742

PATIENT
  Age: 42 Year
  Sex: Male

DRUGS (9)
  1. MYCOPHENOLATE MEFETIL [Concomitant]
  2. SULFATRIM PEDIATRIC [Suspect]
     Indication: RENAL TRANSPLANT
  3. TACROLIMUS [Concomitant]
  4. RANITIDINE [Concomitant]
  5. GANCICLOVIR [Concomitant]
  6. CORTICOSTEROIDS [Concomitant]
  7. ACETAMINOPHEN [Concomitant]
  8. EVEROLIMUS [Concomitant]
  9. OPIOIDS [Concomitant]

REACTIONS (3)
  - SCROTAL DISORDER [None]
  - PURPURA [None]
  - THROMBOCYTOPENIA [None]
